FAERS Safety Report 19406081 (Version 4)
Quarter: 2021Q4

REPORT INFORMATION
  Report Type: Spontaneous
  Country: US (occurrence: US)
  Receive Date: 20210611
  Receipt Date: 20211220
  Transmission Date: 20220303
  Serious: Yes (Hospitalization, Other)
  Sender: FDA-Public Use
  Company Number: US-GW PHARMA-202106USGW02822

PATIENT

DRUGS (53)
  1. EPIDIOLEX [Suspect]
     Active Substance: CANNABIDIOL
     Indication: Partial seizures
     Dosage: 900 MILLIGRAM, BID (26.43 MG/KG/QD)
     Route: 048
  2. EPIDIOLEX [Suspect]
     Active Substance: CANNABIDIOL
     Indication: Epilepsy
  3. EPIDIOLEX [Suspect]
     Active Substance: CANNABIDIOL
     Indication: Focal dyscognitive seizures
  4. FLUTICASONE PROPIONATE [Concomitant]
     Active Substance: FLUTICASONE PROPIONATE
     Indication: Product used for unknown indication
     Dosage: UNK
     Route: 065
  5. CLONAZEPAM [Concomitant]
     Active Substance: CLONAZEPAM
     Indication: Anxiety
     Dosage: 1 MILLIGRAM, TID (AS NEEDED)
     Route: 065
  6. DIAZEPAM [Concomitant]
     Active Substance: DIAZEPAM
     Indication: Seizure
     Dosage: 12.5 MILLIGRAM
     Route: 054
  7. DIAZEPAM [Concomitant]
     Active Substance: DIAZEPAM
     Dosage: 15 MILLIGRAM, SINGLE
     Route: 054
  8. DIAZEPAM [Concomitant]
     Active Substance: DIAZEPAM
     Dosage: 17.5 MILLIGRAM
     Route: 054
  9. DIAZEPAM [Concomitant]
     Active Substance: DIAZEPAM
     Dosage: 20 MILLIGRAM
     Route: 054
  10. ASMANEX HFA [Concomitant]
     Active Substance: MOMETASONE FUROATE
     Indication: Product used for unknown indication
     Dosage: 2 ACTUATION, QD (IN MORNING)
  11. ASMANEX HFA [Concomitant]
     Active Substance: MOMETASONE FUROATE
     Dosage: 2 ACTUATION, QD (IN MORNING)
  12. PROPRANOL HCL [Concomitant]
     Indication: Product used for unknown indication
     Dosage: UNK
     Route: 065
  13. CROMOLYN SODIUM [Concomitant]
     Active Substance: CROMOLYN SODIUM
     Indication: Hypersensitivity
     Dosage: 1 SPRAY IN TO EACH NOSTRIL THREE TIMES A DAY AS NEEDED (5.2 MG/ SPRAY)
     Route: 065
  14. CROMOLYN SODIUM [Concomitant]
     Active Substance: CROMOLYN SODIUM
     Indication: Product used for unknown indication
     Dosage: 1 VIAL VIA NEBULIZER TWICE A DAY AT 7.30 AM AND 3.30 PM
     Route: 065
  15. LAMICTAL [Concomitant]
     Active Substance: LAMOTRIGINE
     Indication: Product used for unknown indication
     Dosage: LAMOTRIGINE XR, 02-JUN-2021 REFILL DATE
     Route: 065
  16. LAMICTAL [Concomitant]
     Active Substance: LAMOTRIGINE
     Dosage: 25 MILLIGRAM, QD (26-MAY-2021 REFILL DATE)
     Route: 065
  17. LAMICTAL XR [Concomitant]
     Active Substance: LAMOTRIGINE
     Indication: Epilepsy
     Dosage: 250 MILLIGRAM, BID
     Route: 048
  18. PEPCID AC [Concomitant]
     Active Substance: FAMOTIDINE
     Indication: Product used for unknown indication
     Dosage: UNK
     Route: 065
  19. XOPENEX [Concomitant]
     Active Substance: LEVALBUTEROL HYDROCHLORIDE
     Indication: Product used for unknown indication
     Dosage: UNK
     Route: 065
  20. ZONEGRAN [Concomitant]
     Active Substance: ZONISAMIDE
     Indication: Product used for unknown indication
     Dosage: 100-250 MILLIGRAM BID
     Route: 065
  21. ZONISAMIDE [Concomitant]
     Active Substance: ZONISAMIDE
     Indication: Epilepsy
     Dosage: 350 MILLIGRAM, QD (100 MG IN THE MORNING, 250 MG IN THE EVENING)
     Route: 048
  22. ZONISAMIDE [Concomitant]
     Active Substance: ZONISAMIDE
     Dosage: 300 MILLIGRAM, QD (ONE CAPSULE BY MOUTH EVERY MORNING AND 2 CAPSULES IN THE EVENING)
     Route: 048
  23. ZONISAMIDE [Concomitant]
     Active Substance: ZONISAMIDE
     Indication: Product used for unknown indication
     Dosage: AT NIGHT IN COMBINATION WITH 200MG FOR TOTAL 250 MG
     Route: 048
  24. CELONTIN [Concomitant]
     Active Substance: METHSUXIMIDE
     Indication: Epilepsy
     Dosage: 300 MILLIGRAM, BID
     Route: 065
  25. CELONTIN [Concomitant]
     Active Substance: METHSUXIMIDE
     Dosage: 300 MILLIGRAM, TID
     Route: 065
  26. VIMPAT [Concomitant]
     Active Substance: LACOSAMIDE
     Indication: Product used for unknown indication
     Dosage: 50 MILLIGRAM, BID
     Route: 048
  27. LAMOTRIGINE [Concomitant]
     Active Substance: LAMOTRIGINE
     Indication: Epilepsy
     Dosage: 260 MILLIGRAM, BID
     Route: 048
  28. NAYZILAM [Concomitant]
     Active Substance: MIDAZOLAM
     Indication: Seizure
     Dosage: 2 ACTUATION, QD (1 SPRAY IN ONE NOSTRIL, IF SEIZURE DOSE NOT STOP, USE THE 2ED SPRAY IN THE OTHER NO
     Route: 045
  29. MELATONIN [Concomitant]
     Active Substance: MELATONIN
     Indication: Product used for unknown indication
     Dosage: 20 MILLIGRAM, QD (AT BEDTIME)
     Route: 048
  30. BUSPIRONE [Concomitant]
     Active Substance: BUSPIRONE HYDROCHLORIDE
     Indication: Anxiety
     Dosage: 30 MILLIGRAM, BID
     Route: 048
  31. DICLOFENAC SODIUM [Concomitant]
     Active Substance: DICLOFENAC SODIUM
     Indication: Pain
     Dosage: 2 GRAM, PRN (2 GRAMS PUT ON SKIN, 4 TIMES A DAY (AS NEEDED))
     Route: 061
  32. FAMOTIDINE [Concomitant]
     Active Substance: FAMOTIDINE
     Indication: Product used for unknown indication
     Dosage: 40 MILLIGRAM, QD (IN THE MORNIGN)
     Route: 048
  33. FLUDROCORTISONE [Concomitant]
     Active Substance: FLUDROCORTISONE
     Indication: Product used for unknown indication
     Dosage: 0.1 MILLIGRAM, QD
     Route: 048
  34. FLUTICASONE [Concomitant]
     Active Substance: FLUTICASONE
     Indication: Product used for unknown indication
     Dosage: 440 MICROGRAM, QD (IN THE MORNIGN)
  35. FLUTICASONE [Concomitant]
     Active Substance: FLUTICASONE
     Indication: Product used for unknown indication
     Dosage: 2 ACTUATION, QD (50 MCG/ INHALATION, 2 SPRAYS INSERT BOTH SIDES OF NOSE)
     Route: 045
  36. LEVALBUTEROL [Concomitant]
     Active Substance: LEVALBUTEROL
     Indication: Cough
     Dosage: 2 ACTUATION, PRN (45 MCG/ ACTUATIO), (REFILL- 27 AUG 2020)
  37. ONDANSETRON [Concomitant]
     Active Substance: ONDANSETRON
     Indication: Nausea
     Dosage: 8 MILLIGRAM, TID (PRN)
     Route: 048
  38. PROMETHAZINE [Concomitant]
     Active Substance: PROMETHAZINE HYDROCHLORIDE
     Indication: Nausea
     Dosage: 25 MILLIGRAM, BID (PRN), EVERY 6-8 HOURS PRN
     Route: 048
     Dates: start: 20200121
  39. PROPRANOLOL [Concomitant]
     Active Substance: PROPRANOLOL HYDROCHLORIDE
     Indication: Product used for unknown indication
     Dosage: 20 MILLIGRAM, BID
     Route: 048
  40. TIZANIDINE [Concomitant]
     Active Substance: TIZANIDINE
     Indication: Product used for unknown indication
     Dosage: 2 MILLIGRAM, QD AS NEEDED
     Route: 048
  41. ATROVENT [Concomitant]
     Active Substance: IPRATROPIUM BROMIDE
     Indication: Product used for unknown indication
     Dosage: 2 ACTUATION, QD
     Route: 045
  42. CROMOLYN [Concomitant]
     Active Substance: CROMOLYN
     Indication: Hypersensitivity
     Dosage: 1 SPRAY INTO EACH NOSTRIL THREE TIMES A DAY AS NEEDED FOR ALLERGIES(5.2 MG PER SPRAY)
     Dates: start: 20210222
  43. DIPHENHYDRAMINE [Concomitant]
     Active Substance: DIPHENHYDRAMINE
     Indication: Product used for unknown indication
     Dosage: UNK, PRN
     Route: 065
  44. IBUPROFEN [Concomitant]
     Active Substance: IBUPROFEN
     Indication: Product used for unknown indication
     Dosage: UNK, PRN
     Route: 065
  45. LACTOSE [Concomitant]
     Active Substance: LACTOSE
     Indication: Lactose intolerance
     Dosage: UNK
     Route: 065
  46. OMEGA-3 FATTY ACIDS [Concomitant]
     Active Substance: OMEGA-3 FATTY ACIDS
     Indication: Product used for unknown indication
     Dosage: 1 DOSAGE FORM, QD
     Route: 065
  47. OXYGEN [Concomitant]
     Active Substance: OXYGEN
     Indication: Product used for unknown indication
     Dosage: UNK
     Route: 065
  48. POLYETHYLENE GLYCOL 3350 [Concomitant]
     Active Substance: POLYETHYLENE GLYCOL 3350
     Indication: Product used for unknown indication
     Dosage: 17 GRAM, QD
     Route: 048
  49. THERMOTABS [Concomitant]
     Indication: Blood pressure measurement
     Dosage: UNK
     Route: 065
  50. TUMS [Concomitant]
     Active Substance: CALCIUM CARBONATE
     Indication: Product used for unknown indication
     Dosage: UNK, PRN
     Route: 065
  51. HERBALS\TURMERIC [Concomitant]
     Active Substance: HERBALS\TURMERIC
     Indication: Inflammation
     Dosage: UNK
     Route: 065
  52. VITAMIN B COMPLEX [Concomitant]
     Active Substance: CYANOCOBALAMIN\DEXPANTHENOL\NIACINAMIDE\PYRIDOXINE HYDROCHLORIDE\RIBOFLAVIN 5^-PHOSPHATE SODIUM\THIA
     Indication: Product used for unknown indication
     Dosage: 1 DOSAGE FORM, QD
     Route: 065
  53. EPIPEN [Concomitant]
     Active Substance: EPINEPHRINE
     Indication: Product used for unknown indication
     Dosage: UNK
     Route: 065

REACTIONS (13)
  - Autonomic nervous system imbalance [Unknown]
  - Chest pain [Unknown]
  - Generalised tonic-clonic seizure [Unknown]
  - Change in seizure presentation [Unknown]
  - Postictal state [Unknown]
  - Oxygen saturation decreased [Unknown]
  - Heart rate increased [Unknown]
  - Hypotension [Unknown]
  - Anxiety [Unknown]
  - Product dose omission issue [Unknown]
  - Product use in unapproved indication [Unknown]
  - Product availability issue [Unknown]
  - Overdose [Unknown]
